FAERS Safety Report 10155808 (Version 2)
Quarter: 2014Q2

REPORT INFORMATION
  Report Type: Report from Study
  Country: CA (occurrence: CA)
  Receive Date: 20140506
  Receipt Date: 20140523
  Transmission Date: 20141212
  Serious: Yes (Other)
  Sender: FDA-Public Use
  Company Number: CA-ABBVIE-14P-028-1230955-00

PATIENT
  Sex: Male
  Weight: 99.88 kg

DRUGS (3)
  1. HUMIRA [Suspect]
     Indication: ANKYLOSING SPONDYLITIS
     Route: 058
     Dates: start: 20100426, end: 20140315
  2. CELEBREX [Concomitant]
     Indication: ARTHRITIS
  3. METHOTREXATE [Concomitant]
     Indication: ARTHRITIS

REACTIONS (3)
  - Arthrodesis [Recovering/Resolving]
  - Condition aggravated [Unknown]
  - Ankle operation [Recovering/Resolving]
